FAERS Safety Report 7546408-7 (Version None)
Quarter: 2011Q2

REPORT INFORMATION
  Report Type: 
  Country: None (occurrence: None)
  Receive Date: 20110524
  Receipt Date: 20110222
  Transmission Date: 20111010
  Serious: No
  Sender: FDA-Public Use
  Company Number: 027966

PATIENT
  Sex: Female
  Weight: 61.2 kg

DRUGS (8)
  1. MERCAPTOPURINE [Concomitant]
  2. OMEPRAZOLE [Concomitant]
  3. BONIVA [Concomitant]
  4. ASPIRIN [Concomitant]
  5. KLONOPIN [Concomitant]
  6. CIMZIA [Suspect]
     Indication: CROHN'S DISEASE
     Dosage: (400 MG 1X/4 WEEKS SUBCUTANEOUS)
     Route: 058
     Dates: start: 20100707
  7. PLAQUENIL [Concomitant]
  8. LEXAPRO [Concomitant]

REACTIONS (1)
  - HEPATIC ENZYME INCREASED [None]
